FAERS Safety Report 6731663-3 (Version None)
Quarter: 2010Q2

REPORT INFORMATION
  Report Type: 
  Country: None (occurrence: None)
  Receive Date: 20100519
  Receipt Date: 20100511
  Transmission Date: 20101027
  Serious: Yes (Other)
  Sender: FDA-Public Use
  Company Number: PHHO2010US07097

PATIENT
  Sex: Female
  Weight: 85.7 kg

DRUGS (3)
  1. AFINITOR [Suspect]
     Indication: METASTATIC NEOPLASM
     Dosage: UNK
     Route: 048
     Dates: start: 20100419, end: 20100426
  2. PACLITAXEL COMP-PAC+ [Suspect]
     Indication: METASTATIC NEOPLASM
     Dosage: 400MG
     Route: 042
     Dates: start: 20100419
  3. CARBOPLATIN COMP-CAB+ [Suspect]
     Indication: METASTATIC NEOPLASM
     Dosage: 765MG
     Route: 042
     Dates: start: 20100419

REACTIONS (1)
  - NEUTROPHIL COUNT ABNORMAL [None]
